FAERS Safety Report 12421845 (Version 1)
Quarter: 2016Q2

REPORT INFORMATION
  Report Type: Spontaneous
  Country: US (occurrence: US)
  Receive Date: 20160531
  Receipt Date: 20160531
  Transmission Date: 20160815
  Serious: Yes (Other)
  Sender: FDA-Public Use
  Company Number: US-MDT-ADR-2016-00522

PATIENT
  Age: 71 Year
  Sex: Male

DRUGS (1)
  1. LIORESAL [Suspect]
     Active Substance: BACLOFEN
     Route: 037

REACTIONS (11)
  - Asthenia [Unknown]
  - Catheter site infection [Unknown]
  - Medical device site discharge [Unknown]
  - Implant site infection [Unknown]
  - Medical device site swelling [Unknown]
  - Postoperative wound infection [Unknown]
  - Incontinence [Unknown]
  - Medical device site erythema [Unknown]
  - Staphylococcal infection [Unknown]
  - Muscle spasticity [Unknown]
  - Pyrexia [Unknown]
